FAERS Safety Report 16291735 (Version 1)
Quarter: 2019Q2

REPORT INFORMATION
  Report Type: Spontaneous
  Country: US (occurrence: US)
  Receive Date: 20190509
  Receipt Date: 20190509
  Transmission Date: 20190711
  Serious: Yes (Other)
  Sender: FDA-Public Use
  Company Number: US-CATALYST PHARMACEUTICALS, INC-2019CAT00128

PATIENT
  Age: 53 Year
  Sex: Female
  Weight: 63.95 kg

DRUGS (1)
  1. FIRDAPSE [Suspect]
     Active Substance: AMIFAMPRIDINE
     Indication: MYASTHENIC SYNDROME
     Dosage: 15 MG (30 MG A DAY)
     Route: 048
     Dates: start: 20190425

REACTIONS (22)
  - Hypopnoea [Unknown]
  - Dry mouth [Not Recovered/Not Resolved]
  - Paraesthesia [Not Recovered/Not Resolved]
  - Hypokinesia [Not Recovered/Not Resolved]
  - Pharyngeal paraesthesia [Not Recovered/Not Resolved]
  - Drug ineffective [Not Recovered/Not Resolved]
  - Hyperhidrosis [Unknown]
  - Asthenia [Not Recovered/Not Resolved]
  - Dysarthria [Not Recovered/Not Resolved]
  - Feeling abnormal [Not Recovered/Not Resolved]
  - Dyspnoea [Not Recovered/Not Resolved]
  - Head injury [Not Recovered/Not Resolved]
  - Gait disturbance [Not Recovered/Not Resolved]
  - Speech disorder [Not Recovered/Not Resolved]
  - Performance status decreased [Not Recovered/Not Resolved]
  - Feeling cold [Not Recovered/Not Resolved]
  - Aptyalism [Not Recovered/Not Resolved]
  - Jaw disorder [Not Recovered/Not Resolved]
  - Therapeutic response delayed [Not Recovered/Not Resolved]
  - Diplopia [Not Recovered/Not Resolved]
  - Decreased appetite [Not Recovered/Not Resolved]
  - Hot flush [Unknown]

NARRATIVE: CASE EVENT DATE: 2019
